FAERS Safety Report 24020751 (Version 1)
Quarter: 2024Q2

REPORT INFORMATION
  Report Type: Spontaneous
  Country: AU (occurrence: AU)
  Receive Date: 20240627
  Receipt Date: 20240627
  Transmission Date: 20240716
  Serious: Yes (Other)
  Sender: FDA-Public Use
  Company Number: AU-CMP PHARMA-2024CMP00032

PATIENT
  Age: 83 Year
  Sex: Male

DRUGS (1)
  1. TRIAMCINOLONE ACETONIDE [Suspect]
     Active Substance: TRIAMCINOLONE ACETONIDE
     Indication: Cystoid macular oedema
     Dosage: 40 MG, ONCE
     Route: 031

REACTIONS (4)
  - Eye abscess [Recovering/Resolving]
  - Compartment syndrome [Recovering/Resolving]
  - Orbital infection [Unknown]
  - Blindness unilateral [Not Recovered/Not Resolved]
